FAERS Safety Report 9436990 (Version 1)
Quarter: 2013Q3

REPORT INFORMATION
  Report Type: Spontaneous
  Country: FR (occurrence: FR)
  Receive Date: 20130802
  Receipt Date: 20130802
  Transmission Date: 20140515
  Serious: Yes (Death, Hospitalization, Other)
  Sender: FDA-Public Use
  Company Number: FR-PFIZER INC-2013224412

PATIENT
  Age: 86 Year
  Sex: Female

DRUGS (10)
  1. CORDARONE [Suspect]
     Indication: ARRHYTHMIA
     Dosage: 200 MG FIVE DAYS PER WEEK
     Route: 048
  2. BISOPROLOL FUMARATE [Suspect]
     Indication: HYPERTENSION
     Dosage: UNK
     Route: 048
  3. CANDESARTAN CILEXETIL [Suspect]
     Indication: HYPERTENSION
     Dosage: UNK
     Route: 048
  4. FUROSEMIDE [Suspect]
     Indication: HYPERTENSION
     Dosage: 60 MG, DAILY
     Route: 048
  5. AMOXICILLIN [Suspect]
     Indication: URINARY TRACT INFECTION
     Dosage: UNK
     Route: 065
     Dates: start: 20130529, end: 20130606
  6. PREVISCAN [Suspect]
     Dosage: 10MG DAILY
     Route: 048
     Dates: end: 20130604
  7. GLUCOPHAGE [Suspect]
     Indication: TYPE 2 DIABETES MELLITUS
     Dosage: UNK
     Route: 048
  8. DOMPERIDONE [Suspect]
     Dosage: UNK, DAILY
     Route: 048
  9. LANSOPRAZOLE [Suspect]
     Dosage: UNK
     Route: 048
  10. PARACETAMOL [Suspect]
     Indication: PAIN
     Dosage: UNK, DAILY
     Route: 048

REACTIONS (13)
  - Cardiac arrest [Fatal]
  - Respiratory arrest [Fatal]
  - General physical health deterioration [Unknown]
  - Dehydration [Unknown]
  - Cognitive disorder [Recovering/Resolving]
  - Hyponatraemia [Recovering/Resolving]
  - Somnolence [Unknown]
  - Hypokalaemia [Recovering/Resolving]
  - Diarrhoea [Unknown]
  - Renal failure acute [Unknown]
  - Pyrexia [Unknown]
  - Lung disorder [Unknown]
  - International normalised ratio increased [Recovered/Resolved]
